FAERS Safety Report 6749744-7 (Version None)
Quarter: 2010Q2

REPORT INFORMATION
  Report Type: 
  Country: None (occurrence: None)
  Receive Date: 20100527
  Receipt Date: 20100514
  Transmission Date: 20101027
  Serious: Yes (Hospitalization)
  Sender: FDA-Public Use
  Company Number: AUR-APL-2010-01039

PATIENT
  Sex: Male

DRUGS (8)
  1. SIMVASTATIN [Suspect]
     Dosage: 1 ^DF^, DAILY, ORAL
     Route: 048
     Dates: start: 20090329, end: 20100329
  2. METFORMIN HCL [Concomitant]
  3. ENALAPRIL MALEATE [Concomitant]
  4. LANSOPRAZOLE [Concomitant]
  5. METOPROLOL TARTRATE [Concomitant]
  6. GLIBOMET [Concomitant]
  7. MODURETIC 5-50 [Concomitant]
  8. ASPIRIN [Concomitant]

REACTIONS (4)
  - AZOTAEMIA [None]
  - HYPERKALAEMIA [None]
  - RENAL FAILURE ACUTE [None]
  - RHABDOMYOLYSIS [None]
